FAERS Safety Report 7372815-1 (Version None)
Quarter: 2011Q1

REPORT INFORMATION
  Report Type: 
  Country: None (occurrence: None)
  Receive Date: 20110324
  Receipt Date: 20110311
  Transmission Date: 20110831
  Serious: Yes (Death, Other)
  Sender: FDA-Public Use
  Company Number: DE-ROCHE-760530

PATIENT
  Age: 36 Year
  Sex: Female

DRUGS (3)
  1. AVASTIN [Suspect]
     Indication: BREAST CANCER
     Route: 042
     Dates: start: 20100803, end: 20101117
  2. TAMOXIFEN CITRATE [Suspect]
     Indication: BREAST CANCER
     Route: 048
     Dates: start: 20100622, end: 20100823
  3. ZOLEDRONIC ACID [Concomitant]
     Indication: BREAST CANCER
     Dates: start: 20100525

REACTIONS (3)
  - TRANSAMINASES INCREASED [None]
  - C-REACTIVE PROTEIN INCREASED [None]
  - MUCOUS MEMBRANE DISORDER [None]
